FAERS Safety Report 19886161 (Version 4)
Quarter: 2021Q4

REPORT INFORMATION
  Report Type: Report from Study
  Country: MX (occurrence: MX)
  Receive Date: 20210928
  Receipt Date: 20211016
  Transmission Date: 20220303
  Serious: Yes (Other)
  Sender: FDA-Public Use
  Company Number: NVSC2021MX218866

PATIENT
  Sex: Female
  Weight: 80 kg

DRUGS (5)
  1. DIOVAN [Suspect]
     Active Substance: VALSARTAN
     Indication: Hypertension
     Dosage: 1 DF (160 MG), BID (STARTED AROUND 17 YEARS AGO)
     Route: 048
  2. DIOVAN [Suspect]
     Active Substance: VALSARTAN
     Dosage: 80 MG, BID (15 YEARS AGO)
     Route: 048
     Dates: start: 2003
  3. DIOVAN [Suspect]
     Active Substance: VALSARTAN
     Dosage: 160 MG, QD (15 YEARS AGO)
     Route: 048
     Dates: start: 2003
  4. DIOVAN [Suspect]
     Active Substance: VALSARTAN
     Dosage: 1 DF, Q12H (STARTED APPROXIMATELY 18 YEARS AGO)
     Route: 048
  5. DIOVAN [Suspect]
     Active Substance: VALSARTAN
     Dosage: 1 DF (160 MG), Q12H (STARTED 17 YEARS AGO)
     Route: 048

REACTIONS (6)
  - Maculopathy [Unknown]
  - Blindness [Unknown]
  - Visual impairment [Unknown]
  - Hypoacusis [Unknown]
  - Eye disorder [Not Recovered/Not Resolved]
  - Inappropriate schedule of product administration [Not Recovered/Not Resolved]

NARRATIVE: CASE EVENT DATE: 20150101
